FAERS Safety Report 7726288-7 (Version None)
Quarter: 2011Q3

REPORT INFORMATION
  Report Type: 
  Country: None (occurrence: None)
  Receive Date: 20110902
  Receipt Date: 20110822
  Transmission Date: 20111222
  Serious: Yes (Hospitalization, Other)
  Sender: FDA-Public Use
  Company Number: US-JNJFOC-20110811276

PATIENT
  Sex: Male
  Weight: 108.86 kg

DRUGS (3)
  1. LEVAQUIN [Suspect]
     Indication: IMMUNOSUPPRESSANT DRUG THERAPY
     Route: 048
     Dates: start: 20110301, end: 20110301
  2. LEVAQUIN [Suspect]
     Route: 042
     Dates: start: 20110301, end: 20110301
  3. LEVAQUIN [Suspect]
     Route: 048
     Dates: start: 20070101, end: 20110301

REACTIONS (17)
  - ATROPHY [None]
  - PLATELET COUNT DECREASED [None]
  - FEELING ABNORMAL [None]
  - PYREXIA [None]
  - TENDONITIS [None]
  - LIMB INJURY [None]
  - URTICARIA [None]
  - BURNING SENSATION [None]
  - PAIN IN EXTREMITY [None]
  - BACK PAIN [None]
  - ARTHRALGIA [None]
  - SWELLING [None]
  - ARTHRITIS [None]
  - THINKING ABNORMAL [None]
  - HYPOAESTHESIA [None]
  - CONTRAINDICATION TO MEDICAL TREATMENT [None]
  - PARAESTHESIA [None]
